FAERS Safety Report 5159293-8 (Version None)
Quarter: 2006Q4

REPORT INFORMATION
  Report Type: 
  Country: None (occurrence: None)
  Receive Date: 20061117
  Receipt Date: 20050930
  Transmission Date: 20070319
  Serious: Yes (Other)
  Sender: FDA-Public Use
  Company Number: HQWYE256806SEP05

PATIENT
  Age: 58 Year
  Sex: Female

DRUGS (10)
  1. RAPAMUNE [Suspect]
     Indication: PROPHYLAXIS AGAINST TRANSPLANT REJECTION
     Dosage: 2 MG 1X PER 1 DAY,  ORAL
     Route: 048
     Dates: start: 20050325, end: 20050824
  2. MYCOPHENOLATE MOFETIL [Concomitant]
  3. ZENAPAX [Concomitant]
  4. PREDNISONE [Concomitant]
  5. NEORAL [Concomitant]
  6. OMEPRAZOLE [Concomitant]
  7. OROCAL (CALCIUM CARBONATE) [Concomitant]
  8. NEORECORMON (EPOETIN BETA) [Concomitant]
  9. VENOFER (FERRIC HYDROXIDE) [Concomitant]
  10. FLUVASTATIN (FLUVASTATIN) [Concomitant]

REACTIONS (9)
  - BLOOD ALKALINE PHOSPHATASE INCREASED [None]
  - CHOLESTASIS [None]
  - CONDITION AGGRAVATED [None]
  - DISEASE PROGRESSION [None]
  - GAMMA-GLUTAMYLTRANSFERASE INCREASED [None]
  - MOBILITY DECREASED [None]
  - OEDEMA PERIPHERAL [None]
  - OSTEONECROSIS [None]
  - SYSTEMIC INFLAMMATORY RESPONSE SYNDROME [None]
